FAERS Safety Report 10216609 (Version 1)
Quarter: 2014Q2

REPORT INFORMATION
  Report Type: Spontaneous
  Country: US (occurrence: US)
  Receive Date: 20140604
  Receipt Date: 20140604
  Transmission Date: 20141212
  Serious: No
  Sender: FDA-Public Use
  Company Number: US-PFIZER INC-2014152764

PATIENT
  Age: 79 Year
  Sex: Female

DRUGS (1)
  1. XELJANZ [Suspect]
     Indication: ILL-DEFINED DISORDER
     Dosage: 5 MG, 2X/DAY
     Route: 048
     Dates: start: 20130803

REACTIONS (1)
  - Drug ineffective [Unknown]
